FAERS Safety Report 6577710-3 (Version None)
Quarter: 2010Q1

REPORT INFORMATION
  Report Type: 
  Country: None (occurrence: None)
  Receive Date: 20100211
  Receipt Date: 20100211
  Transmission Date: 20100710
  Serious: Yes (Hospitalization)
  Sender: FDA-Public Use
  Company Number: PHHO2002RU07134

PATIENT
  Sex: Male
  Weight: 103 kg

DRUGS (5)
  1. STARLIX [Suspect]
     Indication: GLUCOSE TOLERANCE IMPAIRED
     Dosage: LEVEL 1
     Route: 048
     Dates: start: 20020430
  2. STARLIX [Suspect]
     Dosage: LEVEL 2
     Route: 048
  3. DIOVAN [Suspect]
     Dosage: LEVEL 1
     Route: 048
     Dates: start: 20020430
  4. DIOVAN [Suspect]
     Dosage: LEVEL 2
     Route: 048
  5. NICARDIA [Concomitant]
     Indication: ESSENTIAL HYPERTENSION
     Dosage: 40 MG
     Route: 048
     Dates: start: 20020301, end: 20020801

REACTIONS (7)
  - CHEST PAIN [None]
  - DRUG INEFFECTIVE [None]
  - FALL [None]
  - HEADACHE [None]
  - HYPERTENSIVE CRISIS [None]
  - MOBILITY DECREASED [None]
  - WEIGHT INCREASED [None]
